FAERS Safety Report 9496265 (Version 2)
Quarter: 2013Q4

REPORT INFORMATION
  Report Type: Spontaneous
  Country: US (occurrence: US)
  Receive Date: 20130904
  Receipt Date: 20131113
  Transmission Date: 20140711
  Serious: No
  Sender: FDA-Public Use
  Company Number: US-009507513-1308USA012250

PATIENT
  Age: 21 Year
  Sex: Female
  Weight: 73.16 kg

DRUGS (1)
  1. IMPLANON [Suspect]
     Indication: CONTRACEPTION
     Dosage: UNK
     Route: 059
     Dates: start: 20130411, end: 20130710

REACTIONS (1)
  - Menorrhagia [Recovered/Resolved]
